FAERS Safety Report 24372793 (Version 3)
Quarter: 2025Q2

REPORT INFORMATION
  Report Type: Spontaneous
  Country: US (occurrence: US)
  Receive Date: 20240927
  Receipt Date: 20250423
  Transmission Date: 20250716
  Serious: Yes (Other)
  Sender: SANOFI AVENTIS
  Company Number: US-SA-2024SA277536

PATIENT
  Age: 59 Year
  Sex: Female
  Weight: 70 kg

DRUGS (18)
  1. REZUROCK [Suspect]
     Active Substance: BELUMOSUDIL
     Indication: Acute myeloid leukaemia
     Dosage: 200 MG, QD
     Route: 048
     Dates: start: 20211006
  2. REZUROCK [Suspect]
     Active Substance: BELUMOSUDIL
     Indication: Chronic graft versus host disease
  3. VITAMIN D2 [Concomitant]
     Active Substance: ERGOCALCIFEROL
  4. ROSUVASTATIN [Concomitant]
     Active Substance: ROSUVASTATIN
  5. OMEPRAZOLE [Concomitant]
     Active Substance: OMEPRAZOLE
  6. LAMOTRIGINE [Concomitant]
     Active Substance: LAMOTRIGINE
  7. LORAZEPAM [Concomitant]
     Active Substance: LORAZEPAM
  8. LEVOFLOXACIN [Concomitant]
     Active Substance: LEVOFLOXACIN
  9. SIROLIMUS [Concomitant]
     Active Substance: SIROLIMUS
  10. SERTRALINE [Concomitant]
     Active Substance: SERTRALINE HYDROCHLORIDE
  11. SINGULAIR [Concomitant]
     Active Substance: MONTELUKAST SODIUM
  12. CRESEMBA [Concomitant]
     Active Substance: ISAVUCONAZONIUM SULFATE
  13. SALIVACAINE [Concomitant]
     Active Substance: BENZOCAINE
  14. ACYCLOVIR [Concomitant]
     Active Substance: ACYCLOVIR
  15. ASPIRIN [Concomitant]
     Active Substance: ASPIRIN
  16. NIVESTYM [Concomitant]
     Active Substance: FILGRASTIM-AAFI
  17. FAMOTIDINE [Concomitant]
     Active Substance: FAMOTIDINE
  18. OCUVITE [Concomitant]
     Active Substance: VITAMINS

REACTIONS (7)
  - Type 2 diabetes mellitus [Unknown]
  - Graft versus host disease in skin [Unknown]
  - Condition aggravated [Unknown]
  - Eye irritation [Unknown]
  - Cystitis interstitial [Unknown]
  - Asthenia [Unknown]
  - Product use in unapproved indication [Unknown]

NARRATIVE: CASE EVENT DATE: 20211006
